FAERS Safety Report 5082286-6 (Version None)
Quarter: 2006Q3

REPORT INFORMATION
  Report Type: 
  Country: None (occurrence: None)
  Receive Date: 20060816
  Receipt Date: 20060816
  Transmission Date: 20061208
  Serious: Yes (Other)
  Sender: FDA-Public Use
  Company Number: None

PATIENT

DRUGS (2)
  1. VIVELLE-DOT [Suspect]
     Dosage: PATCH
  2. ACTIVELLA [Suspect]
     Dosage: TABLET

REACTIONS (1)
  - DRUG DISPENSING ERROR [None]
